FAERS Safety Report 8406831-5 (Version None)
Quarter: 2012Q2

REPORT INFORMATION
  Report Type: 
  Country: None (occurrence: None)
  Receive Date: 20120604
  Receipt Date: 20120525
  Transmission Date: 20120825
  Serious: Yes (Hospitalization)
  Sender: FDA-Public Use
  Company Number: JP-SANOFI-AVENTIS-2012SA014828

PATIENT
  Age: 81 Year
  Sex: Male

DRUGS (4)
  1. PLAVIX [Suspect]
     Indication: CEREBRAL INFARCTION
     Route: 048
     Dates: start: 20071128
  2. CANDESARTAN CILEXETIL [Concomitant]
     Indication: HYPERTENSION
     Route: 048
     Dates: start: 20071128
  3. ATORVASTATIN CALCIUM [Concomitant]
     Route: 048
     Dates: start: 20110210
  4. NICARDIPINE HCL [Suspect]
     Indication: HYPERTENSION
     Route: 048
     Dates: start: 20111124, end: 20120207

REACTIONS (2)
  - DYSPNOEA [None]
  - INTERSTITIAL LUNG DISEASE [None]
